FAERS Safety Report 4473868-0 (Version None)
Quarter: 2004Q4

REPORT INFORMATION
  Report Type: 
  Country: None (occurrence: None)
  Receive Date: 20041008
  Receipt Date: 20041008
  Transmission Date: 20050328
  Serious: Yes (Hospitalization)
  Sender: FDA-Public Use
  Company Number: None

PATIENT
  Age: 82 Year
  Sex: Male
  Weight: 80 kg

DRUGS (1)
  1. GATIFLOXACIN [Suspect]
     Dosage: 400 MG QD ORAL
     Route: 048
     Dates: start: 20040906, end: 20040920

REACTIONS (3)
  - ABNORMAL FAECES [None]
  - DIARRHOEA [None]
  - FAECES DISCOLOURED [None]
